FAERS Safety Report 5067588-1 (Version None)
Quarter: 2006Q3

REPORT INFORMATION
  Report Type: 
  Country: None (occurrence: None)
  Receive Date: 20060731
  Receipt Date: 20060720
  Transmission Date: 20061208
  Serious: Yes (Hospitalization, Other)
  Sender: FDA-Public Use
  Company Number: US200607004051

PATIENT
  Age: 54 Year
  Sex: Female

DRUGS (3)
  1. CYMBALTA [Suspect]
     Indication: DEPRESSION
     Dosage: 20 MG, ORAL
     Route: 048
     Dates: start: 20060101, end: 20060101
  2. ABILIFY [Concomitant]
  3. CELEXA [Concomitant]

REACTIONS (11)
  - BLOOD BILIRUBIN INCREASED [None]
  - COMA HEPATIC [None]
  - CONDITION AGGRAVATED [None]
  - DELIRIUM [None]
  - ENCEPHALOPATHY [None]
  - HALLUCINATION, OLFACTORY [None]
  - HEPATITIS C [None]
  - LIVER TRANSPLANT REJECTION [None]
  - MENTAL DISORDER [None]
  - PAIN [None]
  - TREATMENT NONCOMPLIANCE [None]
